FAERS Safety Report 22010455 (Version 2)
Quarter: 2023Q1

REPORT INFORMATION
  Report Type: Spontaneous
  Country: CA (occurrence: CA)
  Receive Date: 20230220
  Receipt Date: 20230222
  Transmission Date: 20230417
  Serious: Yes (Hospitalization, Other)
  Sender: FDA-Public Use
  Company Number: CA-002147023-NVSC2023CA035449

PATIENT
  Age: 54 Year
  Sex: Male

DRUGS (24)
  1. QUETIAPINE FUMARATE [Interacting]
     Active Substance: QUETIAPINE FUMARATE
     Indication: Bipolar disorder
     Dosage: UNK
     Route: 048
  2. COBICISTAT [Interacting]
     Active Substance: COBICISTAT
     Indication: HIV infection
     Route: 065
  3. DESVENLAFAXINE SUCCINATE [Interacting]
     Active Substance: DESVENLAFAXINE SUCCINATE
     Indication: Product used for unknown indication
     Route: 065
  4. RISPERDAL [Interacting]
     Active Substance: RISPERIDONE
     Indication: Product used for unknown indication
     Dosage: 4 MG, QD (1 EVERY 1 DAY)
     Route: 065
  5. RISPERDAL [Interacting]
     Active Substance: RISPERIDONE
     Dosage: 5 MG, QD (1 EVERY 1 DAY)
     Route: 065
  6. RISPERDAL [Interacting]
     Active Substance: RISPERIDONE
     Dosage: 2 MG, QD (1 EVERY 1 DAY)
     Route: 065
  7. RISPERDAL [Interacting]
     Active Substance: RISPERIDONE
     Dosage: 3 MG, QD (1 EVERY 1 DAY)
     Route: 065
  8. SERTRALINE HYDROCHLORIDE [Interacting]
     Active Substance: SERTRALINE HYDROCHLORIDE
     Indication: Bipolar disorder
     Dosage: 25 MG, QD (1 EVERY 1 DAY)
     Route: 065
  9. SERTRALINE HYDROCHLORIDE [Interacting]
     Active Substance: SERTRALINE HYDROCHLORIDE
     Dosage: 50 MG, QD (1 EVERY 1 DAY)
     Route: 065
  10. SERTRALINE HYDROCHLORIDE [Interacting]
     Active Substance: SERTRALINE HYDROCHLORIDE
     Dosage: 75 MG, QD (1 EVERY 1 DAY)
     Route: 065
  11. SERTRALINE HYDROCHLORIDE [Interacting]
     Active Substance: SERTRALINE HYDROCHLORIDE
     Dosage: 5 MG, QD (1 EVERY 1 DAY)
     Route: 065
  12. SERTRALINE HYDROCHLORIDE [Interacting]
     Active Substance: SERTRALINE HYDROCHLORIDE
     Dosage: UNK
     Route: 065
  13. ATAZANAVIR SULFATE [Interacting]
     Active Substance: ATAZANAVIR SULFATE
     Indication: HIV infection
     Dosage: UNK
     Route: 065
  14. BUPROPION HYDROBROMIDE [Interacting]
     Active Substance: BUPROPION HYDROBROMIDE
     Indication: Bipolar disorder
     Dosage: UNK
     Route: 065
  15. CLONAZEPAM [Interacting]
     Active Substance: CLONAZEPAM
     Indication: Bipolar disorder
     Dosage: UNK
     Route: 048
  16. EFAVIRENZ [Interacting]
     Active Substance: EFAVIRENZ
     Indication: HIV infection
     Dosage: UNK
     Route: 065
  17. KALETRA [Interacting]
     Active Substance: LOPINAVIR\RITONAVIR
     Indication: HIV infection
     Dosage: UNK
     Route: 065
  18. LAMIVUDINE [Interacting]
     Active Substance: LAMIVUDINE
     Indication: HIV infection
     Dosage: UNK
     Route: 065
  19. RALTEGRAVIR [Interacting]
     Active Substance: RALTEGRAVIR
     Indication: HIV infection
     Dosage: 400 MG
     Route: 048
  20. RALTEGRAVIR POTASSIUM [Interacting]
     Active Substance: RALTEGRAVIR POTASSIUM
     Indication: HIV infection
     Dosage: 400 MG
     Route: 048
  21. SUSTIVA [Interacting]
     Active Substance: EFAVIRENZ
     Indication: Product used for unknown indication
     Dosage: 400 MG
     Route: 048
  22. VALPROIC ACID [Interacting]
     Active Substance: VALPROIC ACID
     Indication: Bipolar disorder
     Dosage: UNK
     Route: 065
  23. ZOPICLONE [Interacting]
     Active Substance: ZOPICLONE
     Indication: Bipolar disorder
     Dosage: UNK
     Route: 048
  24. ENFUVIRTIDE [Concomitant]
     Active Substance: ENFUVIRTIDE
     Indication: Product used for unknown indication
     Dosage: UNK
     Route: 065

REACTIONS (7)
  - Major depression [Not Recovered/Not Resolved]
  - Neuroleptic malignant syndrome [Not Recovered/Not Resolved]
  - Musculoskeletal stiffness [Not Recovered/Not Resolved]
  - Pyrexia [Not Recovered/Not Resolved]
  - Hyperhidrosis [Not Recovered/Not Resolved]
  - Depression [Recovered/Resolved]
  - Drug interaction [Recovered/Resolved]
